FAERS Safety Report 7026774-1 (Version None)
Quarter: 2010Q4

REPORT INFORMATION
  Report Type: 
  Country: None (occurrence: None)
  Receive Date: 20101004
  Receipt Date: 20100930
  Transmission Date: 20110411
  Serious: Yes (Death)
  Sender: FDA-Public Use
  Company Number: US-WYE-H17761710

PATIENT
  Sex: Female
  Weight: 84.8 kg

DRUGS (1)
  1. TEMSIROLIMUS [Suspect]
     Indication: HODGKIN'S DISEASE
     Route: 042
     Dates: start: 20091014, end: 20100913

REACTIONS (26)
  - ANAEMIA [None]
  - ANXIETY [None]
  - BLOOD ALKALINE PHOSPHATASE INCREASED [None]
  - BLOOD MAGNESIUM DECREASED [None]
  - CARDIO-RESPIRATORY ARREST [None]
  - CONDITION AGGRAVATED [None]
  - COUGH [None]
  - DYSPNOEA [None]
  - HEART INJURY [None]
  - HEPATIC LESION [None]
  - HODGKIN'S DISEASE [None]
  - HYPERGLYCAEMIA [None]
  - HYPOKALAEMIA [None]
  - HYPOTENSION [None]
  - ISCHAEMIA [None]
  - LUNG INFILTRATION [None]
  - MALIGNANT NEOPLASM PROGRESSION [None]
  - PLATELET COUNT DECREASED [None]
  - PNEUMOCYSTIS JIROVECI INFECTION [None]
  - PNEUMONIA [None]
  - PULMONARY MASS [None]
  - PULMONARY OEDEMA [None]
  - RESPIRATORY DISORDER [None]
  - SYSTEMIC INFLAMMATORY RESPONSE SYNDROME [None]
  - TRANSFUSION REACTION [None]
  - VENTRICULAR HYPOKINESIA [None]
